FAERS Safety Report 22140829 (Version 1)
Quarter: 2023Q1

REPORT INFORMATION
  Report Type: Spontaneous
  Country: None (occurrence: FR)
  Receive Date: 20230327
  Receipt Date: 20230327
  Transmission Date: 20230418
  Serious: Yes (Death, Other)
  Sender: FDA-Public Use
  Company Number: FR-B.Braun Medical Inc.-2139564

PATIENT
  Age: 28 Year
  Sex: Male

DRUGS (9)
  1. ACETAMINOPHEN [Suspect]
     Active Substance: ACETAMINOPHEN
  2. COCAETHYLENE [Suspect]
     Active Substance: COCAETHYLENE
  3. METHADONE HYDROCHLORIDE [Suspect]
     Active Substance: METHADONE HYDROCHLORIDE
  4. TRAMADOL [Suspect]
     Active Substance: TRAMADOL
  5. COCAINE [Suspect]
     Active Substance: COCAINE
  6. DRONABINOL [Suspect]
     Active Substance: DRONABINOL
  7. MORPHINE [Suspect]
     Active Substance: MORPHINE
  8. BENZOYLECGONINE [Suspect]
     Active Substance: BENZOYLECGONINE
  9. CANNABINOLIC ACID [Suspect]
     Active Substance: CANNABINOLIC ACID

REACTIONS (3)
  - Asphyxia [Fatal]
  - Cardio-respiratory arrest [Fatal]
  - Drug abuse [Fatal]
